FAERS Safety Report 22897825 (Version 2)
Quarter: 2023Q4

REPORT INFORMATION
  Report Type: Spontaneous
  Country: US (occurrence: US)
  Receive Date: 20230903
  Receipt Date: 20231018
  Transmission Date: 20240110
  Serious: No
  Sender: FDA-Public Use
  Company Number: US-PHARMAESSENTIA CORPORATION-US-2023-PEC-001666

PATIENT
  Sex: Male

DRUGS (5)
  1. BESREMI [Suspect]
     Active Substance: ROPEGINTERFERON ALFA-2B-NJFT
     Indication: Polycythaemia vera
     Dosage: 100 MICROGRAM
     Route: 058
     Dates: start: 202202
  2. LIPITOR [Concomitant]
     Active Substance: ATORVASTATIN CALCIUM
     Indication: Product used for unknown indication
     Route: 048
  3. IMDUR [Concomitant]
     Active Substance: ISOSORBIDE MONONITRATE
     Indication: Product used for unknown indication
     Route: 048
  4. OLMESARTAN [Concomitant]
     Active Substance: OLMESARTAN
     Indication: Product used for unknown indication
     Route: 048
  5. ASPIRIN [Concomitant]
     Active Substance: ASPIRIN
     Indication: Product used for unknown indication
     Route: 048

REACTIONS (1)
  - Influenza like illness [Recovered/Resolved]
